FAERS Safety Report 4512242-5 (Version None)
Quarter: 2004Q4

REPORT INFORMATION
  Report Type: 
  Country: None (occurrence: None)
  Receive Date: 20041123
  Receipt Date: 20041109
  Transmission Date: 20050328
  Serious: Yes (Life-Threatening, Hospitalization)
  Sender: FDA-Public Use
  Company Number: RENA-11198

PATIENT
  Age: 82 Year
  Sex: Female
  Weight: 48 kg

DRUGS (12)
  1. RENAGEL [Suspect]
     Indication: HYPERPHOSPHATAEMIA
     Dosage: 1 G BID PO
     Route: 048
     Dates: start: 20040826, end: 20041002
  2. ALFAROL [Concomitant]
  3. LASIX [Concomitant]
  4. ACETYLSALICYLIC ACID [Concomitant]
  5. WARFARIN [Concomitant]
  6. TAGAMET [Concomitant]
  7. SIGMART [Concomitant]
  8. ALLOPURINOL [Concomitant]
  9. SENNOSIDE A + B [Concomitant]
  10. DAIKENTYUTO [Concomitant]
  11. RED BLOOD CELLS [Concomitant]
  12. CALCIUM ACETATE [Concomitant]

REACTIONS (3)
  - ABDOMINAL PAIN [None]
  - ILEUS [None]
  - MELAENA [None]
